FAERS Safety Report 18735839 (Version 11)
Quarter: 2021Q2

REPORT INFORMATION
  Report Type: Spontaneous
  Country: PL (occurrence: PL)
  Receive Date: 20210113
  Receipt Date: 20210522
  Transmission Date: 20210717
  Serious: Yes (Hospitalization, Other)
  Sender: FDA-Public Use
  Company Number: NVSC2021PL005308

PATIENT
  Age: 68 Year
  Sex: Male

DRUGS (22)
  1. CIPROBAY [CIPROFLOXACIN HYDROCHLORIDE] [Interacting]
     Active Substance: CIPROFLOXACIN HYDROCHLORIDE
     Indication: INFECTIOUS DISEASE CARRIER
  2. METOPROLOL. [Interacting]
     Active Substance: METOPROLOL
     Indication: CEREBROVASCULAR ACCIDENT
  3. CIPROBAY [CIPROFLOXACIN HYDROCHLORIDE] [Interacting]
     Active Substance: CIPROFLOXACIN HYDROCHLORIDE
     Indication: PENILE INFECTION
     Dosage: 1000 MG, QD (500 MILLIGRAM, 2X/DAY (BID)
     Route: 048
  4. XARELTO [Interacting]
     Active Substance: RIVAROXABAN
     Indication: ATRIAL FIBRILLATION
     Dosage: 20 MG (AFTER A STROKE)
     Route: 048
  5. ATORVASTATIN CALCIUM. [Interacting]
     Active Substance: ATORVASTATIN CALCIUM
     Indication: ATRIAL FIBRILLATION
     Dosage: 40 MG (AFTER A STROKE)
     Route: 048
  6. METOPROLOL. [Interacting]
     Active Substance: METOPROLOL
     Indication: ATRIAL FIBRILLATION
     Dosage: 100 MG
     Route: 048
  7. XARELTO [Interacting]
     Active Substance: RIVAROXABAN
     Indication: CEREBROVASCULAR ACCIDENT
  8. FLUCONAZOLE. [Interacting]
     Active Substance: FLUCONAZOLE
     Indication: INFECTION
     Dosage: 200 MG, QD (100 MG, BID)
     Route: 048
  9. TRAZODONE [Interacting]
     Active Substance: TRAZODONE HYDROCHLORIDE
     Indication: INSOMNIA
  10. ATORVASTATIN CALCIUM. [Interacting]
     Active Substance: ATORVASTATIN CALCIUM
     Indication: CEREBROVASCULAR ACCIDENT
  11. FUROSEMIDE. [Interacting]
     Active Substance: FUROSEMIDE
     Indication: CARDIOVASCULAR DISORDER
     Dosage: 40 MG
     Route: 048
  12. FUROSEMIDE. [Interacting]
     Active Substance: FUROSEMIDE
     Indication: CEREBROVASCULAR ACCIDENT
  13. FLUCONAZOLE. [Interacting]
     Active Substance: FLUCONAZOLE
     Indication: PENILE INFECTION
     Dosage: 100 MG, Q12H IN COMBINATION WITH CIPROFLOXACIN 2X500 MG ORALLY
     Route: 048
  14. CIPROBAY (CIPROFLOXACIN HYDROCHLORIDE) [Interacting]
     Active Substance: CIPROFLOXACIN HYDROCHLORIDE
     Indication: INFECTION
  15. QUETIAPINE. [Suspect]
     Active Substance: QUETIAPINE
     Indication: INSOMNIA
     Dosage: 25 MG, QD (INITIAL DOSE) AT NIGHT (FILM?COATED TABLET)
     Route: 065
  16. QUETIAPINE. [Interacting]
     Active Substance: QUETIAPINE
     Dosage: 50 MG, QD (INCREASED) AT NIGHT, 50 MG AT BEDTIME) (FILM?COATED TABLET)
     Route: 065
  17. DIAZEPAM. [Interacting]
     Active Substance: DIAZEPAM
     Indication: INSOMNIA
     Dosage: 10 MG, QD (10 MG HALF HOUR BEFORE BEDTIME)
     Route: 065
  18. FUROSEMIDE. [Interacting]
     Active Substance: FUROSEMIDE
     Indication: ATRIAL FIBRILLATION
  19. CETIRIZINE [Interacting]
     Active Substance: CETIRIZINE HYDROCHLORIDE
     Indication: PRURITUS
     Dosage: 10 MG, QD
     Route: 065
  20. CETIRIZINE [Interacting]
     Active Substance: CETIRIZINE HYDROCHLORIDE
     Indication: PRURITUS GENITAL
  21. FLUCONAZOLE. [Interacting]
     Active Substance: FLUCONAZOLE
     Indication: INFECTIOUS DISEASE CARRIER
     Dosage: 100 MG (100 MILLIGRAM)
     Route: 065
  22. TRAZODONE [Interacting]
     Active Substance: TRAZODONE HYDROCHLORIDE
     Indication: SOMNOLENCE
     Dosage: 50 MG, QD (50 MG THREE HOURS BEFORE BEDTIME)
     Route: 065

REACTIONS (16)
  - Insomnia [Unknown]
  - Pruritus genital [Recovered/Resolved]
  - Drug interaction [Recovered/Resolved]
  - Somnolence [Recovered/Resolved]
  - Fall [Recovered/Resolved]
  - Genital haemorrhage [Unknown]
  - Product use in unapproved indication [Unknown]
  - Penile haemorrhage [Recovered/Resolved]
  - Penis injury [Recovered/Resolved]
  - Drug ineffective [Unknown]
  - Pruritus [Recovered/Resolved]
  - Off label use [Unknown]
  - Condition aggravated [Unknown]
  - Haemorrhage [Recovered/Resolved]
  - Drug level increased [Unknown]
  - Contraindicated product administered [Unknown]
